FAERS Safety Report 15306284 (Version 1)
Quarter: 2020Q3

REPORT INFORMATION
  Report Type: Spontaneous
  Country: SE (occurrence: SE)
  Receive Date: 20180822
  Receipt Date: 20180822
  Transmission Date: 20201104
  Serious: Yes (Other)
  Sender: FDA-Public Use
  Company Number: SE-ROCHE-2173227

PATIENT
  Age: 66 Year
  Sex: Female

DRUGS (4)
  1. ALECTINIB. [Suspect]
     Active Substance: ALECTINIB
     Indication: LUNG ADENOCARCINOMA
     Route: 065
     Dates: start: 20170222
  2. OMEPRAZOLE. [Concomitant]
     Active Substance: OMEPRAZOLE
     Route: 065
  3. WARAN [Concomitant]
     Active Substance: WARFARIN SODIUM
     Route: 065
  4. SALURES [Suspect]
     Active Substance: BENDROFLUMETHIAZIDE
     Indication: BLOOD PRESSURE ABNORMAL
     Route: 065
     Dates: start: 20111028

REACTIONS (1)
  - Hypokalaemia [Recovered/Resolved]

NARRATIVE: CASE EVENT DATE: 20170418
